FAERS Safety Report 17181658 (Version 2)
Quarter: 2020Q3

REPORT INFORMATION
  Report Type: Spontaneous
  Country: US (occurrence: US)
  Receive Date: 20191219
  Receipt Date: 20200907
  Transmission Date: 20201102
  Serious: Yes (Hospitalization)
  Sender: FDA-Public Use
  Company Number: US-TEVA-2019-US-1151142

PATIENT
  Age: 52 Year
  Sex: Female
  Weight: 73.28 kg

DRUGS (3)
  1. CLOZAPINE TEVA [Suspect]
     Active Substance: CLOZAPINE
     Indication: SCHIZOAFFECTIVE DISORDER
     Dosage: 300 MILLIGRAM DAILY; DOSE WAS INITIALLY 100 MG IN THE MORNING AND 200 MG AT NIGHT
     Route: 065
     Dates: start: 20190822, end: 20190922
  2. CLOZAPINE TEVA [Suspect]
     Active Substance: CLOZAPINE
     Indication: PSYCHOTIC DISORDER
  3. CLOZAPINE TEVA [Suspect]
     Active Substance: CLOZAPINE
     Indication: DELUSION

REACTIONS (9)
  - Drooling [Recovered/Resolved]
  - Metabolic encephalopathy [Unknown]
  - Neutrophil count decreased [Recovered/Resolved]
  - Mental status changes [Recovered/Resolved]
  - Neutropenia [Recovered/Resolved]
  - Confusional state [Recovered/Resolved]
  - Dyskinesia [Recovered/Resolved]
  - Agranulocytosis [Unknown]
  - Disorientation [Recovered/Resolved]

NARRATIVE: CASE EVENT DATE: 20190922
